FAERS Safety Report 10518852 (Version 1)
Quarter: 2014Q4

REPORT INFORMATION
  Report Type: Spontaneous
  Country: CH (occurrence: CH)
  Receive Date: 20141015
  Receipt Date: 20141015
  Transmission Date: 20150528
  Serious: Yes (Hospitalization)
  Sender: FDA-Public Use
  Company Number: CH-TEVA-514338ISR

PATIENT
  Age: 38 Year
  Sex: Male

DRUGS (2)
  1. IRFEN-400 LACTAB [Suspect]
     Active Substance: IBUPROFEN
     Indication: NECK PAIN
     Dosage: 1200 MILLIGRAM DAILY;
     Route: 048
     Dates: start: 20140428, end: 20140503
  2. CONCERTA [Concomitant]
     Active Substance: METHYLPHENIDATE HYDROCHLORIDE
     Indication: ATTENTION DEFICIT/HYPERACTIVITY DISORDER
     Route: 065

REACTIONS (5)
  - Blood pressure decreased [Recovered/Resolved]
  - Melaena [Recovered/Resolved]
  - Haemoglobin decreased [Unknown]
  - Gastritis erosive [Unknown]
  - Syncope [Recovered/Resolved]

NARRATIVE: CASE EVENT DATE: 20140502
